FAERS Safety Report 14553756 (Version 1)
Quarter: 2018Q1

REPORT INFORMATION
  Report Type: Spontaneous
  Country: DE (occurrence: DE)
  Receive Date: 20180220
  Receipt Date: 20180220
  Transmission Date: 20180509
  Serious: Yes (Other)
  Sender: FDA-Public Use
  Company Number: PHHY2017DE199271

PATIENT
  Age: 75 Year
  Sex: Male
  Weight: 88 kg

DRUGS (20)
  1. ZOMETA [Concomitant]
     Active Substance: ZOLEDRONIC ACID
     Indication: OSTEOLYSIS
     Dosage: 4 MG, QMO
     Route: 041
     Dates: start: 20161019
  2. LAXATIN [Concomitant]
     Indication: CONSTIPATION
     Dosage: 1 OT, QD (3 UNKNOWN)
     Route: 048
     Dates: start: 20170929
  3. DEXAMETHASONE. [Suspect]
     Active Substance: DEXAMETHASONE
     Dosage: 20 MG, UNK
     Route: 065
  4. MARCUMAR [Concomitant]
     Active Substance: PHENPROCOUMON
     Indication: PULMONARY EMBOLISM
     Dosage: 1 OT, QD
     Route: 048
  5. IMNOVID [Suspect]
     Active Substance: POMALIDOMIDE
     Dosage: UNK
     Route: 048
  6. IMNOVID [Suspect]
     Active Substance: POMALIDOMIDE
     Dosage: UNK
     Route: 048
  7. BISOPROLOL [Concomitant]
     Active Substance: BISOPROLOL
     Indication: PRODUCT USED FOR UNKNOWN INDICATION
     Dosage: 2.5 MG, QD
     Route: 048
  8. DEXAMETHASONE. [Suspect]
     Active Substance: DEXAMETHASONE
     Dosage: 20 MG, UNK
     Route: 065
  9. DEXAMETHASONE. [Suspect]
     Active Substance: DEXAMETHASONE
     Dosage: 20 MG, UNK
     Route: 065
  10. IMNOVID [Suspect]
     Active Substance: POMALIDOMIDE
     Dosage: 2 MG, UNK
     Route: 048
  11. IMNOVID [Suspect]
     Active Substance: POMALIDOMIDE
     Dosage: 2 MG, UNK
     Route: 048
  12. IMNOVID [Suspect]
     Active Substance: POMALIDOMIDE
     Dosage: 2 MG, UNK
     Route: 048
  13. IMNOVID [Suspect]
     Active Substance: POMALIDOMIDE
     Dosage: 4 MG, UNK
     Route: 048
  14. DEXAMETHASONE. [Suspect]
     Active Substance: DEXAMETHASONE
     Indication: PLASMA CELL MYELOMA
     Dosage: 20 MG, UNK
     Route: 065
  15. DEXAMETHASONE. [Suspect]
     Active Substance: DEXAMETHASONE
     Dosage: 20 MG, UNK
     Route: 065
  16. IMNOVID [Suspect]
     Active Substance: POMALIDOMIDE
     Indication: PLASMA CELL MYELOMA
     Dosage: 2 MG, UNK
     Route: 048
  17. IMNOVID [Suspect]
     Active Substance: POMALIDOMIDE
     Dosage: 2 MG, UNK
     Route: 048
  18. CEFUROXIM [Concomitant]
     Active Substance: CEFUROXIME
     Indication: NASOPHARYNGITIS
     Dosage: 1000 MILLIGRAM
     Route: 048
     Dates: start: 20170726, end: 20170801
  19. DEXAMETHASONE. [Suspect]
     Active Substance: DEXAMETHASONE
     Dosage: 20 MG, UNK
     Route: 065
  20. OMEPRAZOLE. [Concomitant]
     Active Substance: OMEPRAZOLE
     Indication: PRODUCT USED FOR UNKNOWN INDICATION
     Dosage: 20 MG, QD
     Route: 048

REACTIONS (5)
  - Neutropenia [Recovered/Resolved]
  - Dyspnoea exertional [Recovered/Resolved]
  - Anaemia [Recovered/Resolved]
  - Nasopharyngitis [Recovered/Resolved]
  - Leukopenia [Recovered/Resolved]

NARRATIVE: CASE EVENT DATE: 20170531
